FAERS Safety Report 10428703 (Version 1)
Quarter: 2014Q3

REPORT INFORMATION
  Report Type: Spontaneous
  Country: TR (occurrence: None)
  Receive Date: 20140902
  Receipt Date: 20140902
  Transmission Date: 20150326
  Serious: Yes (Other)
  Sender: FDA-Public Use
  Company Number: IMP_07873_2014

PATIENT
  Age: 8 Year
  Sex: Female

DRUGS (1)
  1. VALPROIC ACID. [Suspect]
     Active Substance: VALPROIC ACID
     Indication: CONVULSION
     Dosage: DF

REACTIONS (5)
  - Vanishing bile duct syndrome [None]
  - Hepatomegaly [None]
  - Cholestasis [None]
  - Jaundice [None]
  - Xanthoma [None]
